FAERS Safety Report 5303234-7 (Version None)
Quarter: 2007Q2

REPORT INFORMATION
  Report Type: 
  Country: None (occurrence: None)
  Receive Date: 20070420
  Receipt Date: 20070413
  Transmission Date: 20071010
  Serious: Yes (Death, Life-Threatening, Hospitalization)
  Sender: FDA-Public Use
  Company Number: IT-ELI_LILLY_AND_COMPANY-IT200703006518

PATIENT
  Age: 76 Year
  Sex: Male

DRUGS (4)
  1. ALIMTA [Suspect]
     Indication: LUNG NEOPLASM MALIGNANT
     Dosage: 500 MG/M2, OTHER
     Route: 042
     Dates: start: 20070226, end: 20070226
  2. CORTICOSTEROID NOS [Concomitant]
     Indication: PREMEDICATION
  3. FOLIC ACID [Concomitant]
     Indication: PREMEDICATION
  4. VITAMIN B-12 [Concomitant]
     Indication: PREMEDICATION

REACTIONS (3)
  - MYOCARDIAL INFARCTION [None]
  - PANCYTOPENIA [None]
  - PSEUDOMONAS INFECTION [None]
